FAERS Safety Report 4459516-4 (Version None)
Quarter: 2004Q3

REPORT INFORMATION
  Report Type: 
  Country: None (occurrence: None)
  Receive Date: 20040910
  Receipt Date: 20040527
  Transmission Date: 20050211
  Serious: No
  Sender: FDA-Public Use
  Company Number: 2004216452US

PATIENT
  Age: 69 Year
  Sex: Female

DRUGS (1)
  1. BEXTRA [Suspect]
     Dosage: 10 MG, QD, UNK
     Route: 065
     Dates: start: 20040501

REACTIONS (2)
  - CHEST DISCOMFORT [None]
  - MUSCLE CRAMP [None]
